FAERS Safety Report 25971324 (Version 1)
Quarter: 2025Q4

REPORT INFORMATION
  Report Type: Other
  Country: EU (occurrence: EU)
  Receive Date: 20251028
  Receipt Date: 20251028
  Transmission Date: 20260118
  Serious: Yes (Other)
  Sender: KNIGHT THERAPEUTICS
  Company Number: EU-Knight Therapeutics (USA) Inc.-2187437

PATIENT
  Age: 11 Month
  Sex: Male

DRUGS (1)
  1. IMPAVIDO [Suspect]
     Active Substance: MILTEFOSINE
     Indication: Visceral leishmaniasis

REACTIONS (3)
  - Hepatotoxicity [Recovered/Resolved]
  - Product use in unapproved indication [Unknown]
  - Product use issue [Unknown]
